FAERS Safety Report 4287708-6 (Version None)
Quarter: 2004Q1

REPORT INFORMATION
  Report Type: 
  Country: None (occurrence: None)
  Receive Date: 20040209
  Receipt Date: 20030904
  Transmission Date: 20041129
  Serious: No
  Sender: FDA-Public Use
  Company Number: US-GLAXOSMITHKLINE-A0424704A

PATIENT
  Age: 74 Year
  Sex: Male

DRUGS (5)
  1. PAXIL [Suspect]
     Dosage: 25MG PER DAY
     Route: 048
     Dates: start: 20030801
  2. GLUCOTROL [Concomitant]
  3. DEPAKOTE [Concomitant]
  4. XANAX [Concomitant]
  5. ACCUPRIL [Concomitant]

REACTIONS (3)
  - ANXIETY [None]
  - DEPRESSION [None]
  - MUSCLE TWITCHING [None]
